FAERS Safety Report 13843421 (Version 1)
Quarter: 2017Q3

REPORT INFORMATION
  Report Type: Spontaneous
  Country: US (occurrence: US)
  Receive Date: 20170808
  Receipt Date: 20170808
  Transmission Date: 20171127
  Serious: No
  Sender: FDA-Public Use
  Company Number: None

PATIENT

DRUGS (2)
  1. METFORMIN [Suspect]
     Active Substance: METFORMIN HYDROCHLORIDE
  2. ATORVASTATIN 20MG [Suspect]
     Active Substance: ATORVASTATIN

REACTIONS (4)
  - Incorrect dose administered [None]
  - Drug dispensing error [None]
  - Chest pain [None]
  - Wrong drug administered [None]

NARRATIVE: CASE EVENT DATE: 2017
